FAERS Safety Report 11895567 (Version 1)
Quarter: 2016Q1

REPORT INFORMATION
  Report Type: Spontaneous
  Country: US (occurrence: US)
  Receive Date: 20160107
  Receipt Date: 20160107
  Transmission Date: 20160526
  Serious: No
  Sender: FDA-Public Use
  Company Number: PHEH2015US027531

PATIENT
  Sex: Female

DRUGS (1)
  1. FARYDAK [Suspect]
     Active Substance: PANOBINOSTAT
     Indication: PLASMA CELL MYELOMA
     Dosage: 20 MG, 1 CAPSULE ON DAYS 1, 3, 5, 15, 17, AND 19 OF A 21 DAY CYCLE WITH 7 DAYS OFF
     Route: 048

REACTIONS (1)
  - Fatigue [Not Recovered/Not Resolved]
